FAERS Safety Report 8213033-4 (Version None)
Quarter: 2012Q1

REPORT INFORMATION
  Report Type: 
  Country: None (occurrence: None)
  Receive Date: 20120315
  Receipt Date: 20120306
  Transmission Date: 20120608
  Serious: Yes (Hospitalization, Other)
  Sender: FDA-Public Use
  Company Number: US-JNJFOC-20120302893

PATIENT
  Sex: Male
  Weight: 94.35 kg

DRUGS (1)
  1. DURAGESIC-100 [Suspect]
     Indication: BACK PAIN
     Route: 062
     Dates: end: 20050101

REACTIONS (8)
  - PULMONARY EMBOLISM [None]
  - PAIN [None]
  - WEIGHT FLUCTUATION [None]
  - NEUROPATHY PERIPHERAL [None]
  - BODY HEIGHT DECREASED [None]
  - BONE DEFORMITY [None]
  - MEMORY IMPAIRMENT [None]
  - DECREASED APPETITE [None]
